FAERS Safety Report 7936632-3 (Version None)
Quarter: 2011Q4

REPORT INFORMATION
  Report Type: 
  Country: None (occurrence: None)
  Receive Date: 20111123
  Receipt Date: 20111116
  Transmission Date: 20120403
  Serious: Yes (Hospitalization)
  Sender: FDA-Public Use
  Company Number: US-JNJFOC-20111103047

PATIENT
  Sex: Male
  Weight: 61.6 kg

DRUGS (13)
  1. SUCRALFATE [Concomitant]
  2. OXYCONTIN [Concomitant]
  3. CHLORASEPTIC [Concomitant]
  4. MESALAMINE [Concomitant]
     Indication: INFLAMMATORY BOWEL DISEASE
     Route: 048
  5. BENADRYL [Concomitant]
  6. REMICADE [Suspect]
     Indication: INFLAMMATORY BOWEL DISEASE
     Route: 042
     Dates: start: 20051114, end: 20110201
  7. PERCOCET [Concomitant]
  8. OPTIVAR [Concomitant]
  9. EPIDUO [Concomitant]
  10. MARIJUANA [Concomitant]
  11. SOLU-MEDROL [Concomitant]
     Route: 042
  12. ESOMEPRAZOLE [Concomitant]
  13. BACTROBAN [Concomitant]

REACTIONS (1)
  - ABDOMINAL PAIN [None]
